FAERS Safety Report 12571671 (Version 1)
Quarter: 2016Q3

REPORT INFORMATION
  Report Type: Spontaneous
  Country: TR (occurrence: TR)
  Receive Date: 20160719
  Receipt Date: 20160719
  Transmission Date: 20161109
  Serious: Yes (Hospitalization, Other)
  Sender: FDA-Public Use
  Company Number: TR-WATSON-2016-15744

PATIENT
  Age: 16 Year
  Sex: Male

DRUGS (1)
  1. METOCLOPRAMIDE. [Suspect]
     Active Substance: METOCLOPRAMIDE
     Indication: SUICIDE ATTEMPT
     Dosage: 30 MG, TOTAL
     Route: 048

REACTIONS (2)
  - Dystonia [Recovered/Resolved]
  - Suicide attempt [Recovered/Resolved]
